FAERS Safety Report 18002455 (Version 3)
Quarter: 2020Q3

REPORT INFORMATION
  Report Type: Spontaneous
  Country: US (occurrence: US)
  Receive Date: 20200709
  Receipt Date: 20200807
  Transmission Date: 20201103
  Serious: Yes (Other)
  Sender: FDA-Public Use
  Company Number: US-DSJP-DSU-2020-119241

PATIENT

DRUGS (6)
  1. TURALIO [Suspect]
     Active Substance: PEXIDARTINIB HYDROCHLORIDE
     Indication: MAXILLOFACIAL SINUS NEOPLASM
  2. CYMBALTA [Concomitant]
     Active Substance: DULOXETINE HYDROCHLORIDE
     Indication: PRODUCT USED FOR UNKNOWN INDICATION
     Dosage: UNK
     Route: 065
  3. DUAVEE                             /08396601/ [Concomitant]
     Indication: PRODUCT USED FOR UNKNOWN INDICATION
     Dosage: UNK
     Route: 065
  4. TURALIO [Suspect]
     Active Substance: PEXIDARTINIB HYDROCHLORIDE
     Indication: GORHAM^S DISEASE
     Dosage: 400 MG, BID (DIRECTIONS ON PRESCRIPTION)
     Route: 048
     Dates: start: 20200615, end: 20200627
  5. IMATINIB. [Concomitant]
     Active Substance: IMATINIB MESYLATE
     Indication: PRODUCT USED FOR UNKNOWN INDICATION
     Dosage: UNK
     Route: 065
  6. ONDANSETRON [Concomitant]
     Active Substance: ONDANSETRON
     Indication: PRODUCT USED FOR UNKNOWN INDICATION
     Dosage: UNK
     Route: 065

REACTIONS (9)
  - Blood blister [Recovering/Resolving]
  - Skin weeping [Recovering/Resolving]
  - Suicidal ideation [Unknown]
  - Rash [Recovering/Resolving]
  - Depressed mood [Unknown]
  - Bone erosion [Recovering/Resolving]
  - Off label use [Recovered/Resolved]
  - Pain [Recovering/Resolving]
  - Bone deformity [Recovering/Resolving]

NARRATIVE: CASE EVENT DATE: 2020
